FAERS Safety Report 23820459 (Version 1)
Quarter: 2024Q2

REPORT INFORMATION
  Report Type: Spontaneous
  Country: BE (occurrence: BE)
  Receive Date: 20240506
  Receipt Date: 20240506
  Transmission Date: 20240715
  Serious: Yes (Other)
  Sender: FDA-Public Use
  Company Number: BE-002147023-NVSC2024BE060941

PATIENT
  Age: 54 Year
  Sex: Female

DRUGS (5)
  1. BEOVU [Suspect]
     Active Substance: BROLUCIZUMAB-DBLL
     Indication: Polypoidal choroidal vasculopathy
     Dosage: UNK
     Route: 065
     Dates: start: 20220823, end: 20220823
  2. BEOVU [Suspect]
     Active Substance: BROLUCIZUMAB-DBLL
     Dosage: UNK
     Route: 065
     Dates: start: 20221005, end: 20221005
  3. BEOVU [Suspect]
     Active Substance: BROLUCIZUMAB-DBLL
     Dosage: UNK
     Route: 065
     Dates: start: 20230117, end: 20230117
  4. EYLEA [Concomitant]
     Active Substance: AFLIBERCEPT
     Indication: Polypoidal choroidal vasculopathy
     Dosage: UNK
     Route: 065
     Dates: start: 202204
  5. EYLEA [Concomitant]
     Active Substance: AFLIBERCEPT
     Dosage: UNK
     Route: 065
     Dates: start: 202212

REACTIONS (3)
  - Uveitis [Recovering/Resolving]
  - Keratic precipitates [Recovering/Resolving]
  - Eye inflammation [Recovered/Resolved]

NARRATIVE: CASE EVENT DATE: 20230401
